FAERS Safety Report 18546500 (Version 2)
Quarter: 2020Q4

REPORT INFORMATION
  Report Type: Spontaneous
  Country: US (occurrence: US)
  Receive Date: 20201125
  Receipt Date: 20201218
  Transmission Date: 20210114
  Serious: No
  Sender: FDA-Public Use
  Company Number: US-PFIZER INC-2020464026

PATIENT
  Age: 62 Year
  Sex: Female

DRUGS (1)
  1. IBRANCE [Suspect]
     Active Substance: PALBOCICLIB
     Indication: BREAST CANCER
     Dosage: 125 MG, CYCLIC (DAYS 1-21 OF A 28 DAY CYCLE)
     Route: 048
     Dates: start: 20201112

REACTIONS (5)
  - Hypotension [Unknown]
  - Rash erythematous [Unknown]
  - Dizziness [Unknown]
  - Rhinalgia [Unknown]
  - Fatigue [Unknown]
